FAERS Safety Report 22119530 (Version 1)
Quarter: 2023Q1

REPORT INFORMATION
  Report Type: Spontaneous
  Country: US (occurrence: US)
  Receive Date: 20230321
  Receipt Date: 20230321
  Transmission Date: 20230418
  Serious: No
  Sender: FDA-Public Use
  Company Number: US-PADAGIS-2023PAD00325

PATIENT

DRUGS (2)
  1. TRETINOIN (EMOLLIENT) [Suspect]
     Active Substance: TRETINOIN
     Indication: Actinic keratosis
     Dosage: UNK
     Route: 065
     Dates: start: 202303, end: 202303
  2. TRETINOIN [Suspect]
     Active Substance: TRETINOIN
     Indication: Actinic keratosis
     Dosage: UNK
     Route: 065
     Dates: start: 202303, end: 202303

REACTIONS (4)
  - Application site pruritus [Not Recovered/Not Resolved]
  - Application site erythema [Not Recovered/Not Resolved]
  - Expired product administered [Unknown]
  - Product use in unapproved indication [Unknown]

NARRATIVE: CASE EVENT DATE: 20230301
